FAERS Safety Report 4570311-8 (Version None)
Quarter: 2005Q1

REPORT INFORMATION
  Report Type: 
  Country: None (occurrence: None)
  Receive Date: 20050127
  Receipt Date: 20050127
  Transmission Date: 20050727
  Serious: Yes (Death)
  Sender: FDA-Public Use
  Company Number: None

PATIENT
  Age: 67 Year
  Sex: Female
  Weight: 74.5 kg

DRUGS (11)
  1. LOVENOX [Suspect]
     Indication: PULMONARY EMBOLISM
     Dosage: 60 MG Q12H SUBCUTANEOUS
     Route: 058
     Dates: start: 20040528, end: 20040605
  2. ROCEPHIN [Concomitant]
  3. AMIODARONE [Concomitant]
  4. PROTONIX [Concomitant]
  5. CARAFATE [Concomitant]
  6. MULTI-VITAMIN [Concomitant]
  7. RENAGEL [Concomitant]
  8. TYLENOL [Concomitant]
  9. VICODIN [Concomitant]
  10. PHENERGAN [Concomitant]
  11. VERAPAMIL [Concomitant]

REACTIONS (6)
  - CARDIO-RESPIRATORY ARREST [None]
  - FIBRIN D DIMER INCREASED [None]
  - HAEMOGLOBIN DECREASED [None]
  - HAEMORRHAGE [None]
  - HYPOTENSION [None]
  - PULMONARY EMBOLISM [None]
